FAERS Safety Report 8926669 (Version 2)
Quarter: 2012Q4

REPORT INFORMATION
  Report Type: Report from Study
  Country: AU (occurrence: AU)
  Receive Date: 20121127
  Receipt Date: 20121212
  Transmission Date: 20130627
  Serious: Yes (Disabling)
  Sender: FDA-Public Use
  Company Number: AU-ROCHE-1159827

PATIENT
  Age: 71 Year
  Sex: Male

DRUGS (11)
  1. METHOXY POLYETHYLENE GLYCOL-EPOETIN BETA [Suspect]
     Indication: NEPHROGENIC ANAEMIA
     Route: 058
     Dates: start: 20110504
  2. METHOXY POLYETHYLENE GLYCOL-EPOETIN BETA [Suspect]
     Route: 058
     Dates: start: 20111206
  3. ZANIDIP [Concomitant]
     Route: 065
  4. CALCIUM/VITAMIN D [Concomitant]
     Route: 065
  5. NEXIUM [Concomitant]
     Route: 065
  6. MINIPRESS [Concomitant]
     Route: 065
  7. LIPITOR [Concomitant]
     Route: 065
  8. COVERSYL [Concomitant]
     Route: 065
  9. BETALOC [Concomitant]
     Route: 048
  10. AVANDAMET [Concomitant]
     Dosage: 1000/4
     Route: 048
  11. LASIX [Concomitant]
     Route: 065

REACTIONS (1)
  - Blood iron decreased [Unknown]
